FAERS Safety Report 15423462 (Version 1)
Quarter: 2018Q4

REPORT INFORMATION
  Report Type: Spontaneous
  Country: US (occurrence: US)
  Receive Date: 20180925
  Receipt Date: 20180925
  Transmission Date: 20190204
  Serious: No
  Sender: FDA-Public Use
  Company Number: US-ACCORD-061072

PATIENT
  Sex: Male

DRUGS (1)
  1. NALOXONE ACCORD [Suspect]
     Active Substance: NALOXONE
     Indication: DEPENDENCE
     Dosage: STRENGTH: 50 MG

REACTIONS (1)
  - Product dose omission [Unknown]
